FAERS Safety Report 9920822 (Version 1)
Quarter: 2014Q1

REPORT INFORMATION
  Report Type: Spontaneous
  Country: US (occurrence: US)
  Receive Date: 20140224
  Receipt Date: 20140224
  Transmission Date: 20141002
  Serious: Yes (Death)
  Sender: FDA-Public Use
  Company Number: US-ROCHE-1355124

PATIENT
  Age: 60 Year
  Sex: Male
  Weight: 76 kg

DRUGS (7)
  1. KLONOPIN [Suspect]
     Indication: MUSCLE CONTRACTIONS INVOLUNTARY
     Route: 065
     Dates: start: 20060825
  2. TOPROL XL [Concomitant]
     Route: 065
     Dates: start: 20060915
  3. RILUZOLE [Concomitant]
     Indication: AMYOTROPHIC LATERAL SCLEROSIS
     Route: 065
     Dates: start: 20070215
  4. TRAMADOL [Concomitant]
     Indication: PAIN
     Dosage: AS NEEDED
     Route: 065
     Dates: start: 20070614
  5. PRILOSEC [Concomitant]
     Route: 065
     Dates: start: 20070614
  6. CYMBALTA [Concomitant]
     Indication: AFFECT LABILITY
     Route: 065
     Dates: start: 20070615
  7. LITHIUM CARBONATE [Concomitant]
     Indication: AMYOTROPHIC LATERAL SCLEROSIS
     Route: 065
     Dates: start: 20090430

REACTIONS (1)
  - Death [Fatal]
